FAERS Safety Report 7138566-3 (Version None)
Quarter: 2010Q4

REPORT INFORMATION
  Report Type: 
  Country: None (occurrence: None)
  Receive Date: 20101201
  Receipt Date: 20101201
  Transmission Date: 20110411
  Serious: Yes (Hospitalization)
  Sender: FDA-Public Use
  Company Number: None

PATIENT
  Age: 49 Year
  Sex: Female
  Weight: 72.5755 kg

DRUGS (2)
  1. PROPOXYPHENE HCL AND ACETAMINOPHEN [Suspect]
     Indication: ARTHRALGIA
     Dosage: 1 6HRS PO
     Route: 048
     Dates: start: 20100515, end: 20101129
  2. PROPOXYPHENE HCL AND ACETAMINOPHEN [Suspect]
     Indication: ARTHRITIS
     Dosage: 1 6HRS PO
     Route: 048
     Dates: start: 20100515, end: 20101129

REACTIONS (4)
  - ABNORMAL BEHAVIOUR [None]
  - CONFUSIONAL STATE [None]
  - DIZZINESS [None]
  - MEMORY IMPAIRMENT [None]
